FAERS Safety Report 22191189 (Version 1)
Quarter: 2023Q2

REPORT INFORMATION
  Report Type: Spontaneous
  Country: US (occurrence: US)
  Receive Date: 20230410
  Receipt Date: 20230410
  Transmission Date: 20230722
  Serious: Yes (Hospitalization, Other)
  Sender: FDA-Public Use
  Company Number: US-HALEON-USCH2023HLN009482

PATIENT
  Age: 46 Year
  Sex: Female

DRUGS (6)
  1. CALCIUM CARBONATE [Suspect]
     Active Substance: CALCIUM CARBONATE
     Indication: Hypocalcaemia
     Dosage: UNKNOWN
     Route: 048
  2. CALCIUM CARBONATE [Suspect]
     Active Substance: CALCIUM CARBONATE
     Indication: Parathyroid disorder
  3. ASPIRIN\CITRIC ACID MONOHYDRATE\SODIUM BICARBONATE [Suspect]
     Active Substance: ASPIRIN\CITRIC ACID MONOHYDRATE\SODIUM BICARBONATE
     Indication: Analgesic therapy
     Route: 065
  4. ASPIRIN\CITRIC ACID MONOHYDRATE\SODIUM BICARBONATE [Suspect]
     Active Substance: ASPIRIN\CITRIC ACID MONOHYDRATE\SODIUM BICARBONATE
     Indication: Abdominal discomfort
  5. VITAMIN D [Concomitant]
     Active Substance: VITAMIN D NOS
     Indication: Parathyroid disorder
     Dosage: UNKNOWN
     Route: 065
  6. VITAMIN D [Concomitant]
     Active Substance: VITAMIN D NOS
     Indication: Hypocalcaemia

REACTIONS (5)
  - Pancreatitis acute [Recovered/Resolved]
  - Milk-alkali syndrome [Recovered/Resolved]
  - Retinopathy [Recovering/Resolving]
  - Retinal haemorrhage [Recovering/Resolving]
  - Cholelithiasis [Unknown]
